FAERS Safety Report 14914720 (Version 1)
Quarter: 2018Q2

REPORT INFORMATION
  Report Type: Spontaneous
  Country: US (occurrence: US)
  Receive Date: 20180518
  Receipt Date: 20180518
  Transmission Date: 20180711
  Serious: No
  Sender: FDA-Public Use
  Company Number: US-TEVA-2018-US-892408

PATIENT
  Age: 79 Year
  Sex: Female

DRUGS (2)
  1. PROAIR HFA [Suspect]
     Active Substance: ALBUTEROL SULFATE
     Indication: WHEEZING
     Dosage: TWO PUFFS EVERY SIX HOURS AS NEEDED
     Dates: start: 201701, end: 20180507
  2. PROPAFENONE. [Suspect]
     Active Substance: PROPAFENONE
     Route: 065

REACTIONS (5)
  - Inappropriate schedule of drug administration [Unknown]
  - Drug prescribing error [Unknown]
  - Dyspnoea [Unknown]
  - Respiratory tract irritation [Recovered/Resolved]
  - Wheezing [Unknown]

NARRATIVE: CASE EVENT DATE: 201701
